FAERS Safety Report 6442827-0 (Version None)
Quarter: 2009Q4

REPORT INFORMATION
  Report Type: 
  Country: None (occurrence: None)
  Receive Date: 20091112
  Receipt Date: 20091104
  Transmission Date: 20100525
  Serious: Yes (Hospitalization)
  Sender: FDA-Public Use
  Company Number: 2009SP031530

PATIENT
  Age: 32 Year
  Sex: Female
  Weight: 96 kg

DRUGS (5)
  1. AVANZA (MIRTAZAPINE) [Suspect]
     Indication: DRUG USE FOR UNKNOWN INDICATION
     Dosage: 60 MG;QD; 90 MG;QD
  2. PRISTIQ [Suspect]
     Indication: DRUG USE FOR UNKNOWN INDICATION
     Dosage: 200 MG;QD; 100 MG;QD
     Dates: start: 20090915
  3. AMPHETAMINE SULFATE [Concomitant]
  4. HEROIN [Concomitant]
  5. NEXIUM [Concomitant]

REACTIONS (7)
  - CONVULSION [None]
  - DELUSION [None]
  - DIPLOPIA [None]
  - FATIGUE [None]
  - FEELING ABNORMAL [None]
  - SOMNOLENCE [None]
  - VISION BLURRED [None]
